FAERS Safety Report 12100919 (Version 1)
Quarter: 2016Q1

REPORT INFORMATION
  Report Type: Spontaneous
  Country: GB (occurrence: GB)
  Receive Date: 20160222
  Receipt Date: 20160222
  Transmission Date: 20160526
  Serious: Yes (Death)
  Sender: FDA-Public Use
  Company Number: GB-PFIZER INC-2016106376

PATIENT
  Age: 48 Year
  Sex: Male

DRUGS (6)
  1. PROMETHAZINE [Concomitant]
     Active Substance: PROMETHAZINE\PROMETHAZINE HYDROCHLORIDE
     Dosage: UNK
  2. PREGABALIN. [Suspect]
     Active Substance: PREGABALIN
     Indication: ANXIETY
     Dosage: 75 MG, 2X/DAY
     Route: 048
     Dates: start: 20160204
  3. DULOXETINE. [Concomitant]
     Active Substance: DULOXETINE
     Dosage: UNK
  4. MIRTAZAPINE. [Concomitant]
     Active Substance: MIRTAZAPINE
     Dosage: UNK
  5. CITALOPRAM [Suspect]
     Active Substance: CITALOPRAM HYDROBROMIDE
     Indication: DEPRESSION
     Dosage: 40 MG, 1X/DAY (IN THE MORNING. TITRATED UP TO THE MAXIMUM DOSE.)
     Dates: start: 20160203
  6. LORAZEPAM. [Concomitant]
     Active Substance: LORAZEPAM
     Dosage: UNK

REACTIONS (1)
  - Completed suicide [Fatal]

NARRATIVE: CASE EVENT DATE: 20160205
